FAERS Safety Report 8403276-9 (Version None)
Quarter: 2012Q2

REPORT INFORMATION
  Report Type: 
  Country: None (occurrence: None)
  Receive Date: 20120601
  Receipt Date: 20120528
  Transmission Date: 20120825
  Serious: Yes (Death)
  Sender: FDA-Public Use
  Company Number: BR-ROCHE-1073037

PATIENT
  Age: 14 Year
  Sex: Female

DRUGS (3)
  1. MABTHERA [Suspect]
     Indication: RENAL FAILURE ACUTE
  2. MABTHERA [Suspect]
     Indication: CONVULSION
  3. MABTHERA [Suspect]
     Indication: SYSTEMIC LUPUS ERYTHEMATOSUS

REACTIONS (1)
  - DISSEMINATED INTRAVASCULAR COAGULATION [None]
